FAERS Safety Report 11410289 (Version 2)
Quarter: 2017Q2

REPORT INFORMATION
  Report Type: Spontaneous
  Country: RO (occurrence: RO)
  Receive Date: 20150824
  Receipt Date: 20170602
  Transmission Date: 20170829
  Serious: Yes (Life-Threatening, Other)
  Sender: FDA-Public Use
  Company Number: RO-GLAXOSMITHKLINE-RO2015GSK120516

PATIENT
  Age: 10 Month
  Sex: Male

DRUGS (2)
  1. NUROFEN [Concomitant]
     Active Substance: IBUPROFEN
     Indication: PHARYNGOTONSILLITIS
  2. ZINNAT [Suspect]
     Active Substance: CEFUROXIME AXETIL
     Indication: PHARYNGOTONSILLITIS
     Dosage: 7 ML, QD
     Dates: start: 20150818, end: 20150820

REACTIONS (2)
  - Dermatitis allergic [Recovered/Resolved]
  - Rash papular [Recovered/Resolved]

NARRATIVE: CASE EVENT DATE: 20150819
